FAERS Safety Report 24987543 (Version 4)
Quarter: 2025Q1

REPORT INFORMATION
  Report Type: Spontaneous
  Country: KR (occurrence: KR)
  Receive Date: 20250219
  Receipt Date: 20250319
  Transmission Date: 20250409
  Serious: Yes (Hospitalization)
  Sender: EISAI
  Company Number: KR-Eisai-EC-2025-184083

PATIENT
  Age: 82 Year
  Sex: Female
  Weight: 56.6 kg

DRUGS (2)
  1. LEQEMBI [Suspect]
     Active Substance: LECANEMAB-IRMB
     Indication: Dementia Alzheimer^s type
     Dates: start: 20250109, end: 20250109
  2. LEQEMBI [Suspect]
     Active Substance: LECANEMAB-IRMB
     Dates: start: 20250123, end: 20250123

REACTIONS (7)
  - Status epilepticus [Recovered/Resolved]
  - Vomiting [Unknown]
  - Hyponatraemia [Unknown]
  - Hypokalaemia [Unknown]
  - Amyloid related imaging abnormality-oedema/effusion [Unknown]
  - Muscular weakness [Not Recovered/Not Resolved]
  - Magnetic resonance imaging head abnormal [Unknown]

NARRATIVE: CASE EVENT DATE: 20250101
